FAERS Safety Report 8250812 (Version 2)
Quarter: 2012Q4

REPORT INFORMATION
  Report Type: 
  Country: US (occurrence: US)
  Receive Date: 20111117
  Receipt Date: 20121023
  Transmission Date: 20130627
  Serious: No
  Sender: FDA-Public Use
  Company Number: US-AMGEN-USASP2011005298

PATIENT
  Age: 39 Year
  Sex: Female

DRUGS (2)
  1. ENBREL [Suspect]
     Indication: PSORIASIS
     Dosage: 50 mg, 2 times/wk
     Route: 058
     Dates: start: 20110111, end: 20110201
  2. HUMIRA [Suspect]

REACTIONS (7)
  - Urticaria [Unknown]
  - Injection site reaction [Recovered/Resolved]
  - Injection site erythema [Unknown]
  - Tenderness [Unknown]
  - Swelling [Unknown]
  - Oedema [Unknown]
  - Nodule [Unknown]
